FAERS Safety Report 5256838-4 (Version None)
Quarter: 2007Q1

REPORT INFORMATION
  Report Type: 
  Country: None (occurrence: None)
  Receive Date: 20070306
  Receipt Date: 20070223
  Transmission Date: 20070707
  Serious: Yes (Hospitalization, Congenital Anomaly, Other)
  Sender: FDA-Public Use
  Company Number: CA-SHR-CA-2003-026651

PATIENT
  Sex: Male
  Weight: 3.09 kg

DRUGS (1)
  1. BETASERON [Suspect]
     Indication: SECONDARY PROGRESSIVE MULTIPLE SCLEROSIS
     Dosage: 9.6 MIU, 3X/WEEK
     Route: 058
     Dates: start: 20001006, end: 20011021

REACTIONS (1)
  - CRANIOSYNOSTOSIS [None]
